FAERS Safety Report 13505743 (Version 2)
Quarter: 2017Q2

REPORT INFORMATION
  Report Type: Spontaneous
  Country: PT (occurrence: PT)
  Receive Date: 20170502
  Receipt Date: 20170511
  Transmission Date: 20170830
  Serious: Yes (Hospitalization)
  Sender: FDA-Public Use
  Company Number: PT-ABBVIE-17P-130-1959870-00

PATIENT
  Age: 44 Year
  Sex: Female

DRUGS (3)
  1. KIVEXA [Concomitant]
     Active Substance: ABACAVIR SULFATE\LAMIVUDINE
     Indication: HIV INFECTION
     Dosage: 600MG ABACAVIR +  300MG LAMIVUDINE
     Dates: start: 1998
  2. MIGRETIL [Interacting]
     Active Substance: DIHYDROERGOTAMINE MESYLATE
     Indication: MIGRAINE
     Dosage: 1MG ERGOTAMINE  TARTARATE + 500MG PARACETAMOL + 100MG CAFFEINE + 0.1MG BELLADONNA
     Route: 048
  3. KALETRA [Suspect]
     Active Substance: LOPINAVIR\RITONAVIR
     Indication: HIV INFECTION
     Dosage: 400MG LOPINAVIR + 100MG RITONAVIR
     Route: 048
     Dates: start: 1998

REACTIONS (2)
  - Drug interaction [Recovered/Resolved]
  - Ergot poisoning [Recovered/Resolved]
